FAERS Safety Report 6066280-4 (Version None)
Quarter: 2009Q1

REPORT INFORMATION
  Report Type: 
  Country: None (occurrence: None)
  Receive Date: 20090202
  Receipt Date: 20081209
  Transmission Date: 20090719
  Serious: Yes (Other)
  Sender: FDA-Public Use
  Company Number: 1-17060625

PATIENT
  Age: 78 Year
  Sex: Female
  Weight: 67.586 kg

DRUGS (3)
  1. WARFARIN SODIUM [Suspect]
     Indication: ATRIAL FIBRILLATION
     Dosage: CYCLES OF 4MG/D, 4MG/D, 3MG/D, ORAL
     Route: 048
     Dates: start: 20081113, end: 20081119
  2. WARFARIN SODIUM [Suspect]
     Indication: ATRIAL FIBRILLATION
     Dosage: NO ORDERS, ORAL
     Route: 048
     Dates: start: 20081113, end: 20081119
  3. DIGOXIN [Concomitant]

REACTIONS (3)
  - DRUG DISPENSING ERROR [None]
  - INCORRECT DOSE ADMINISTERED [None]
  - INTERNATIONAL NORMALISED RATIO INCREASED [None]
